FAERS Safety Report 6339393-7 (Version None)
Quarter: 2009Q3

REPORT INFORMATION
  Report Type: 
  Country: None (occurrence: None)
  Receive Date: 20090828
  Receipt Date: 20080915
  Transmission Date: 20100115
  Serious: Yes (Other)
  Sender: FDA-Public Use
  Company Number: KADN20080356

PATIENT
  Age: 18 Year
  Sex: Male

DRUGS (4)
  1. MORPHINE [Suspect]
     Dates: end: 20080101
  2. OXYCONTIN [Suspect]
     Dates: end: 20080101
  3. VICODIN [Suspect]
     Dates: end: 20080101
  4. PERCOCET [Suspect]
     Dates: end: 20080101

REACTIONS (2)
  - DRUG ABUSE [None]
  - DRUG WITHDRAWAL SYNDROME [None]
